FAERS Safety Report 9055797 (Version 1)
Quarter: 2013Q1

REPORT INFORMATION
  Report Type: Spontaneous
  Country: US (occurrence: US)
  Receive Date: 20130206
  Receipt Date: 20130206
  Transmission Date: 20140127
  Serious: Yes (Hospitalization, Disabling, Other)
  Sender: FDA-Public Use
  Company Number: US-ABBOTT-13P-163-1041134-00

PATIENT
  Age: 85 None
  Sex: Female
  Weight: 61.29 kg

DRUGS (7)
  1. HUMIRA [Suspect]
     Indication: RHEUMATOID ARTHRITIS
     Route: 058
     Dates: start: 2010, end: 201204
  2. HUMIRA [Suspect]
     Route: 058
     Dates: start: 201209, end: 201301
  3. METHOTREXATE [Concomitant]
     Indication: RHEUMATOID ARTHRITIS
  4. LISINOPRIL [Concomitant]
     Indication: HYPERTENSION
  5. CARDIZEM [Concomitant]
     Indication: HYPERTENSION
  6. FOLIC ACID [Concomitant]
     Indication: PRODUCT USED FOR UNKNOWN INDICATION
  7. PLAQUENIL [Concomitant]
     Indication: RHEUMATOID ARTHRITIS

REACTIONS (7)
  - Monoparesis [Not Recovered/Not Resolved]
  - Subdural haematoma [Recovering/Resolving]
  - Dysarthria [Recovering/Resolving]
  - Cognitive disorder [Not Recovered/Not Resolved]
  - Cerebral haemorrhage [Recovered/Resolved]
  - Post procedural complication [Recovered/Resolved]
  - Sinusitis [Recovered/Resolved]
